FAERS Safety Report 11141274 (Version 1)
Quarter: 2015Q2

REPORT INFORMATION
  Report Type: Spontaneous
  Country: US (occurrence: US)
  Receive Date: 20150527
  Receipt Date: 20150527
  Transmission Date: 20150821
  Serious: No
  Sender: FDA-Public Use
  Company Number: US-MALLINCKRODT-QSC-2014-0693

PATIENT

DRUGS (1)
  1. H.P. ACTHAR [Suspect]
     Active Substance: CORTICOTROPIN
     Indication: PRODUCT USED FOR UNKNOWN INDICATION
     Dosage: 80 UNITS, QD
     Dates: start: 201409

REACTIONS (4)
  - Arthralgia [Unknown]
  - Aggression [Unknown]
  - Photophobia [Unknown]
  - Hyperacusis [Unknown]

NARRATIVE: CASE EVENT DATE: 201409
